FAERS Safety Report 5757795-4 (Version None)
Quarter: 2008Q2

REPORT INFORMATION
  Report Type: 
  Country: None (occurrence: None)
  Receive Date: 20080603
  Receipt Date: 20080523
  Transmission Date: 20081010
  Serious: Yes (Other)
  Sender: FDA-Public Use
  Company Number: PHHY2008BR03217

PATIENT
  Sex: Female
  Weight: 60 kg

DRUGS (3)
  1. FORADIL [Suspect]
     Indication: CHRONIC OBSTRUCTIVE PULMONARY DISEASE
     Dosage: 12 MCG, BID
     Dates: start: 20080201, end: 20080311
  2. EUTHYROX [Concomitant]
     Indication: HYPOTHYROIDISM
  3. SYNTHROID [Concomitant]
     Indication: HYPOTHYROIDISM
     Dosage: UNK

REACTIONS (2)
  - DRUG INEFFECTIVE [None]
  - THYROIDECTOMY [None]
